FAERS Safety Report 12996036 (Version 1)
Quarter: 2016Q4

REPORT INFORMATION
  Report Type: Not Available
  Country: None (occurrence: US)
  Receive Date: 20161202
  Receipt Date: 20161202
  Transmission Date: 20170207
  Serious: Yes (Other)
  Sender: FDA-Public Use
  Company Number: US-AKORN-43269

PATIENT
  Sex: Female

DRUGS (1)
  1. LATANOPROST 0.005 % OPHTHALMIC SOLUTION [Suspect]
     Active Substance: LATANOPROST

REACTIONS (2)
  - Headache [None]
  - Ocular hyperaemia [None]
